FAERS Safety Report 14672997 (Version 2)
Quarter: 2018Q3

REPORT INFORMATION
  Report Type: Spontaneous
  Country: US (occurrence: US)
  Receive Date: 20180323
  Receipt Date: 20180816
  Transmission Date: 20181010
  Serious: Yes (Other)
  Sender: FDA-Public Use
  Company Number: US-DRREDDYS-USA/USA/18/0096967

PATIENT
  Age: 28 Year
  Sex: Female

DRUGS (1)
  1. ESOMEPRAZOLE [Suspect]
     Active Substance: ESOMEPRAZOLE
     Indication: GASTROOESOPHAGEAL REFLUX DISEASE
     Route: 065

REACTIONS (5)
  - Gastrointestinal motility disorder [Recovered/Resolved]
  - Hypergastrinaemia [Recovered/Resolved]
  - Abdominal distension [Recovered/Resolved]
  - Abnormal faeces [Recovered/Resolved]
  - Abdominal pain [Recovered/Resolved]
